FAERS Safety Report 8824936 (Version 1)
Quarter: 2012Q4

REPORT INFORMATION
  Report Type: Report from Study
  Country: US (occurrence: US)
  Receive Date: 20121004
  Receipt Date: 20121004
  Transmission Date: 20130627
  Serious: Yes (Hospitalization)
  Sender: FDA-Public Use
  Company Number: US-JNJFOC-20100706464

PATIENT
  Age: 45 Year
  Sex: Male
  Weight: 70.31 kg

DRUGS (11)
  1. USTEKINUMAB [Suspect]
     Route: 058
  2. USTEKINUMAB [Suspect]
     Indication: SARCOIDOSIS
     Route: 058
     Dates: start: 20100513
  3. PLACEBO [Suspect]
     Indication: SARCOIDOSIS
     Route: 058
     Dates: start: 20100513
  4. SPIRIVA [Concomitant]
     Indication: DYSPNOEA
     Dosage: 18 mcg
     Route: 055
     Dates: start: 20100224
  5. PROTONIX [Concomitant]
     Indication: GASTROOESOPHAGEAL REFLUX DISEASE
     Route: 048
     Dates: start: 20100224
  6. FOLIC ACID [Concomitant]
     Indication: MEDICAL DIET
     Route: 048
     Dates: start: 20100224
  7. FOSAMAX [Concomitant]
     Indication: OSTEOPENIA
     Route: 048
     Dates: start: 20100224
  8. ADVAIR DISKUS [Concomitant]
     Indication: DYSPNOEA
     Dosage: 500/50 mcg
     Route: 055
     Dates: start: 20100224
  9. PREDNISONE [Concomitant]
     Indication: SARCOIDOSIS
     Route: 048
  10. PREDNISONE [Concomitant]
     Indication: SARCOIDOSIS
     Dosage: 1.5 tabs daily.
     Route: 048
     Dates: start: 20091008
  11. PREDNISONE [Concomitant]
     Indication: SARCOIDOSIS
     Dosage: 1 tablet daily.
     Route: 048
     Dates: start: 20091008

REACTIONS (1)
  - Musculoskeletal chest pain [Recovered/Resolved]
